FAERS Safety Report 16480201 (Version 4)
Quarter: 2019Q3

REPORT INFORMATION
  Report Type: Spontaneous
  Country: US (occurrence: US)
  Receive Date: 20190626
  Receipt Date: 20190816
  Transmission Date: 20191004
  Serious: Yes (Other)
  Sender: FDA-Public Use
  Company Number: US-AMGEN-USASP2019100095

PATIENT
  Age: 20 Year
  Sex: Male
  Weight: 38.1 kg

DRUGS (9)
  1. SOMATROPIN. [Concomitant]
     Active Substance: SOMATROPIN
     Dosage: 10 MILLIGRAM
     Route: 058
  2. ENBREL [Suspect]
     Active Substance: ETANERCEPT
     Indication: PRODUCT USED FOR UNKNOWN INDICATION
     Dosage: UNK
     Route: 058
  3. MTX [METHOTREXATE] [Suspect]
     Active Substance: METHOTREXATE SODIUM
     Dosage: UNK (PILLS)
     Route: 065
  4. XELJANZ XR [Concomitant]
     Active Substance: TOFACITINIB CITRATE
     Indication: JUVENILE IDIOPATHIC ARTHRITIS
     Dosage: 11 MILLIGRAM
     Route: 065
  5. HUMIRA [Concomitant]
     Active Substance: ADALIMUMAB
     Indication: PRODUCT USED FOR UNKNOWN INDICATION
     Dosage: UNK
     Route: 065
  6. ACETAMINOPHEN;HYDROCODONE [Concomitant]
     Active Substance: ACETAMINOPHEN\HYDROCODONE
     Dosage: 5-325 MG TABLET ONE TABLET, AS NECESSARY
     Route: 048
  7. HYDROCODONE [Concomitant]
     Active Substance: HYDROCODONE
     Indication: JUVENILE IDIOPATHIC ARTHRITIS
     Dosage: UNK UNK, AS NECESSARY (PRN)
  8. MTX [METHOTREXATE] [Suspect]
     Active Substance: METHOTREXATE SODIUM
     Indication: PRODUCT USED FOR UNKNOWN INDICATION
     Dosage: UNK, INJECTABLES
     Route: 065
  9. ASPIRIN [ACETYLSALICYLIC ACID] [Concomitant]
     Active Substance: ASPIRIN
     Dosage: 325 MILLIGRAM, QD
     Route: 048

REACTIONS (13)
  - Joint range of motion decreased [Unknown]
  - Drug intolerance [Unknown]
  - Gait disturbance [Unknown]
  - Grip strength decreased [Unknown]
  - Pruritus [Unknown]
  - Balance disorder [Unknown]
  - Fatigue [Unknown]
  - Knee arthroplasty [Unknown]
  - Asthenia [Unknown]
  - Pain [Not Recovered/Not Resolved]
  - Limb deformity [Unknown]
  - Adverse drug reaction [Unknown]
  - Treatment failure [Unknown]

NARRATIVE: CASE EVENT DATE: 201904
